FAERS Safety Report 10349098 (Version 1)
Quarter: 2014Q3

REPORT INFORMATION
  Report Type: Spontaneous
  Country: US (occurrence: US)
  Receive Date: 20140729
  Receipt Date: 20140729
  Transmission Date: 20150326
  Serious: No
  Sender: FDA-Public Use
  Company Number: US-009507513-1407USA007436

PATIENT
  Age: 62 Year
  Sex: Female
  Weight: 104.31 kg

DRUGS (1)
  1. JANUVIA [Suspect]
     Active Substance: SITAGLIPTIN PHOSPHATE
     Indication: BLOOD GLUCOSE INCREASED
     Dosage: 1 DF, QD, AT BREAKFEST
     Route: 048
     Dates: start: 20130205, end: 20130206

REACTIONS (3)
  - Fibromyalgia [Unknown]
  - Gait disturbance [Recovered/Resolved]
  - Arthralgia [Recovered/Resolved]

NARRATIVE: CASE EVENT DATE: 20130205
